FAERS Safety Report 5809815-6 (Version None)
Quarter: 2008Q3

REPORT INFORMATION
  Report Type: 
  Country: None (occurrence: None)
  Receive Date: 20080714
  Receipt Date: 20080714
  Transmission Date: 20090109
  Serious: Yes (Other)
  Sender: FDA-Public Use
  Company Number: None

PATIENT
  Age: 20 Year
  Sex: Female
  Weight: 61.2356 kg

DRUGS (2)
  1. SEASONIQUE [Suspect]
     Indication: CONTRACEPTION
     Dosage: 1 TABLET ONCE DAILY PO
     Route: 048
     Dates: start: 20070205, end: 20071201
  2. ALESSE [Suspect]
     Indication: CONTRACEPTION
     Dosage: 1 TABLET ONCE DAILY PO
     Route: 048
     Dates: start: 20071201, end: 20080331

REACTIONS (3)
  - URINARY TRACT INFECTION [None]
  - VULVITIS [None]
  - VULVOVAGINAL MYCOTIC INFECTION [None]
